FAERS Safety Report 22533097 (Version 1)
Quarter: 2023Q2

REPORT INFORMATION
  Report Type: Spontaneous
  Country: US (occurrence: US)
  Receive Date: 20230607
  Receipt Date: 20230607
  Transmission Date: 20230722
  Serious: No
  Sender: FDA-Public Use
  Company Number: US-GALDERMA-US2023007969

PATIENT

DRUGS (13)
  1. PROACTIV MD ADAPALENE ACNE TREATMENT [Suspect]
     Active Substance: ADAPALENE
     Indication: Acne
     Dosage: 1 DOSAGE FORM, QD, A LITLE BIT SMALLER THAN A PEA SIZE
     Route: 061
     Dates: start: 202304
  2. PROACTIV MD ADAPALENE ACNE TREATMENT [Suspect]
     Active Substance: ADAPALENE
     Indication: Scar
  3. Proactiv MD Ultra Gentle Cleanser [Concomitant]
     Indication: Acne
     Dosage: 1 DOSAGE FORM, QD, A LITTLE BALL, NOT EVEN A PEA
     Route: 061
     Dates: start: 202304
  4. Proactiv MD Ultra Gentle Cleanser [Concomitant]
     Indication: Scar
  5. Proactiv MD Ultra Hydrating Moisturizer [Concomitant]
     Indication: Acne
     Dosage: 1 DOSAGE FORM, QD, A LITTLE BALL, NOT EVEN A PEA
     Route: 061
     Dates: start: 202304
  6. Proactiv MD Ultra Hydrating Moisturizer [Concomitant]
     Indication: Scar
  7. PROACTIV CLEAR SKIN SPF 30 [Concomitant]
     Active Substance: AVOBENZONE\OCTISALATE\OCTOCRYLENE
     Indication: Acne
     Dosage: 1 DOSAGE FORM, QD, A LITTLE BALL, NOT EVEN A PEA
     Route: 061
     Dates: start: 202304
  8. PROACTIV CLEAR SKIN SPF 30 [Concomitant]
     Active Substance: AVOBENZONE\OCTISALATE\OCTOCRYLENE
     Indication: Scar
  9. Proactiv Post Acne Dark Mark Relief [Concomitant]
     Indication: Acne
     Dosage: 1 DOSAGE FORM, QD, A LITTLE BALL, NOT EVEN A PEA
     Route: 061
     Dates: start: 202304
  10. Proactiv Post Acne Dark Mark Relief [Concomitant]
     Indication: Scar
  11. Proactiv Post Acne Scar Gel [Concomitant]
     Indication: Acne
     Dosage: 1 DOSAGE FORM, QD, A LITTLE BALL, NOT EVEN A PEA
     Route: 061
     Dates: start: 202304
  12. Proactiv Post Acne Scar Gel [Concomitant]
     Indication: Scar
  13. VITAMINS NOS [Concomitant]
     Active Substance: VITAMINS
     Indication: Product used for unknown indication
     Route: 065

REACTIONS (2)
  - Scar [Not Recovered/Not Resolved]
  - Acne [Not Recovered/Not Resolved]

NARRATIVE: CASE EVENT DATE: 20230401
